FAERS Safety Report 5446358-6 (Version None)
Quarter: 2007Q3

REPORT INFORMATION
  Report Type: 
  Country: None (occurrence: None)
  Receive Date: 20070907
  Receipt Date: 20070831
  Transmission Date: 20080115
  Serious: Yes (Hospitalization)
  Sender: FDA-Public Use
  Company Number: B0483797A

PATIENT
  Age: 80 Year
  Sex: Female
  Weight: 44 kg

DRUGS (7)
  1. ZOVIRAX [Suspect]
     Indication: ORAL HERPES
     Dosage: 200MG FOUR TIMES PER DAY
     Route: 048
     Dates: start: 20070802, end: 20070806
  2. FAMOTIDINE [Concomitant]
     Route: 048
  3. MUCOSTA [Concomitant]
     Route: 048
  4. ACTONEL [Concomitant]
     Route: 048
  5. ROCALTROL [Concomitant]
     Route: 048
  6. PREDONINE [Concomitant]
     Route: 048
     Dates: start: 20070807
  7. SOL-MELCORT [Concomitant]
     Dosage: 1000MG PER DAY
     Dates: start: 20070804, end: 20070806

REACTIONS (1)
  - RENAL TUBULAR DISORDER [None]
